FAERS Safety Report 23191130 (Version 1)
Quarter: 2023Q4

REPORT INFORMATION
  Report Type: Report from Study
  Country: US (occurrence: US)
  Receive Date: 20231116
  Receipt Date: 20231116
  Transmission Date: 20240109
  Serious: No
  Sender: FDA-Public Use
  Company Number: US-ALXN-A202212594AA

PATIENT
  Sex: Female

DRUGS (3)
  1. STRENSIQ [Suspect]
     Active Substance: ASFOTASE ALFA
     Indication: Hypophosphatasia
     Dosage: UNK
     Route: 065
  2. DUPIXENT [Suspect]
     Active Substance: DUPILUMAB
     Indication: Product used for unknown indication
     Dosage: UNK
     Route: 065
  3. HUMAN IMMUNOGLOBULIN G [Suspect]
     Active Substance: HUMAN IMMUNOGLOBULIN G
     Indication: Autoimmune disorder
     Dosage: UNK, Q3W
     Route: 042

REACTIONS (17)
  - Headache [Unknown]
  - Visual impairment [Unknown]
  - Alopecia [Unknown]
  - Photophobia [Unknown]
  - Tinnitus [Unknown]
  - Heart rate abnormal [Unknown]
  - Gastrointestinal disorder [Unknown]
  - Feeling hot [Unknown]
  - Blood pressure abnormal [Unknown]
  - Myalgia [Unknown]
  - Product dose omission issue [Unknown]
  - Muscle fatigue [Unknown]
  - Ligament sprain [Recovered/Resolved]
  - Injection site reaction [Recovering/Resolving]
  - Injection site erythema [Recovering/Resolving]
  - Injection site pain [Recovering/Resolving]
  - Hypersensitivity [Recovering/Resolving]
